FAERS Safety Report 17931510 (Version 1)
Quarter: 2020Q2

REPORT INFORMATION
  Report Type: Spontaneous
  Country: CA (occurrence: CA)
  Receive Date: 20200623
  Receipt Date: 20200623
  Transmission Date: 20200714
  Serious: Yes (Death, Hospitalization)
  Sender: FDA-Public Use
  Company Number: CA-ROCHE-2627478

PATIENT
  Age: 70 Year
  Sex: Male

DRUGS (15)
  1. LEVOTHYROXINE. [Concomitant]
     Active Substance: LEVOTHYROXINE
  2. ASA [Concomitant]
     Active Substance: ASPIRIN
  3. VENTOLIN [Concomitant]
     Active Substance: ALBUTEROL SULFATE
  4. CITALOPRAM [Concomitant]
     Active Substance: CITALOPRAM HYDROBROMIDE
  5. UMECLIDINIUM BROMIDE [Concomitant]
     Active Substance: UMECLIDINIUM BROMIDE
  6. CATHFLO ACTIVASE [Suspect]
     Active Substance: ALTEPLASE
     Indication: PRODUCT USED FOR UNKNOWN INDICATION
     Route: 042
  7. AMLODIPINE [Concomitant]
     Active Substance: AMLODIPINE BESYLATE
  8. HYDROMORPHONE [Concomitant]
     Active Substance: HYDROMORPHONE
  9. METOPROLOL. [Concomitant]
     Active Substance: METOPROLOL
  10. PERINDOPRIL [Concomitant]
     Active Substance: PERINDOPRIL
  11. PANTOPRAZOLE [Concomitant]
     Active Substance: PANTOPRAZOLE
  12. TAMSULOSIN [Concomitant]
     Active Substance: TAMSULOSIN
  13. ROSUVASTATIN. [Concomitant]
     Active Substance: ROSUVASTATIN
  14. DUTASTERIDE. [Concomitant]
     Active Substance: DUTASTERIDE
  15. METFORMIN [Concomitant]
     Active Substance: METFORMIN HYDROCHLORIDE
     Route: 065

REACTIONS (2)
  - Brain herniation [Fatal]
  - Haemorrhage intracranial [Fatal]
